FAERS Safety Report 6188782-2 (Version None)
Quarter: 2009Q2

REPORT INFORMATION
  Report Type: 
  Country: None (occurrence: None)
  Receive Date: 20090513
  Receipt Date: 20090508
  Transmission Date: 20091009
  Serious: Yes (Hospitalization)
  Sender: FDA-Public Use
  Company Number: US-B.I. PHARMACEUTICALS,INC./RIDGEFIELD-2009-BP-05800BP

PATIENT
  Age: 76 Year
  Sex: Male

DRUGS (5)
  1. FLOMAX [Suspect]
     Indication: BENIGN PROSTATIC HYPERPLASIA
     Dosage: .4MG
     Route: 048
     Dates: start: 20071101
  2. WARFARIN SODIUM [Suspect]
     Dosage: 5MG
     Route: 048
     Dates: start: 20090316
  3. SIMVASTATIN [Concomitant]
  4. ZOLPIDEM [Concomitant]
  5. DILTIAZEM [Concomitant]

REACTIONS (4)
  - ARRHYTHMIA [None]
  - ASTHENIA [None]
  - BLOOD PRESSURE INCREASED [None]
  - DIZZINESS [None]
